FAERS Safety Report 18418168 (Version 2)
Quarter: 2020Q4

REPORT INFORMATION
  Report Type: Spontaneous
  Country: US (occurrence: US)
  Receive Date: 20201023
  Receipt Date: 20201104
  Transmission Date: 20210114
  Serious: No
  Sender: FDA-Public Use
  Company Number: US-HORIZON-2020HZN00163

PATIENT
  Age: 56 Year
  Sex: Female
  Weight: 104 kg

DRUGS (11)
  1. VITAMIN C [Concomitant]
     Active Substance: ASCORBIC ACID
  2. XANAX [Concomitant]
     Active Substance: ALPRAZOLAM
  3. MAGNESIUM [Concomitant]
     Active Substance: MAGNESIUM
  4. PRAVACHOL [Concomitant]
     Active Substance: PRAVASTATIN SODIUM
  5. ZINC. [Concomitant]
     Active Substance: ZINC
  6. CYCLOBENZAPRINE HCL [Concomitant]
     Active Substance: CYCLOBENZAPRINE HYDROCHLORIDE
  7. HYDROCHLOROTHIAZIDE. [Concomitant]
     Active Substance: HYDROCHLOROTHIAZIDE
  8. TEPEZZA [Suspect]
     Active Substance: TEPROTUMUMAB-TRBW
     Indication: ENDOCRINE OPHTHALMOPATHY
     Dosage: 10MG/KG IV EVERY THREE WEEKS
     Route: 050
     Dates: start: 20200930
  9. CALCIUM [Concomitant]
     Active Substance: CALCIUM
  10. PRILOSEC OTC [Concomitant]
     Active Substance: OMEPRAZOLE MAGNESIUM
  11. TAPAZOLE [Concomitant]
     Active Substance: METHIMAZOLE

REACTIONS (5)
  - Muscle spasms [Recovered/Resolved]
  - Fatigue [Recovered/Resolved]
  - Headache [Unknown]
  - Muscle twitching [Not Recovered/Not Resolved]
  - Muscular weakness [Unknown]

NARRATIVE: CASE EVENT DATE: 20201014
